FAERS Safety Report 8840688 (Version 2)
Quarter: 2012Q4

REPORT INFORMATION
  Report Type: 
  Country: US (occurrence: US)
  Receive Date: 20121015
  Receipt Date: 20121116
  Transmission Date: 20130627
  Serious: Yes (Death)
  Sender: FDA-Public Use
  Company Number: US-ROCHE-GNE093626

PATIENT
  Sex: Male

DRUGS (2)
  1. NUTROPIN [Suspect]
     Indication: DWARFISM
     Route: 058
  2. INSULIN [Concomitant]

REACTIONS (7)
  - Cardiac failure congestive [Fatal]
  - Arthralgia [Unknown]
  - Oedema [Unknown]
  - Weight decreased [Unknown]
  - Decreased appetite [Unknown]
  - Mydriasis [Unknown]
  - Photosensitivity reaction [Unknown]
